FAERS Safety Report 12983679 (Version 5)
Quarter: 2017Q1

REPORT INFORMATION
  Report Type: Spontaneous
  Country: US (occurrence: US)
  Receive Date: 20161129
  Receipt Date: 20170210
  Transmission Date: 20170428
  Serious: Yes (Hospitalization)
  Sender: FDA-Public Use
  Company Number: US-009507513-1611USA012085

PATIENT
  Sex: Female

DRUGS (2)
  1. DULERA [Suspect]
     Active Substance: FORMOTEROL FUMARATE DIHYDRATE\MOMETASONE FUROATE
     Dosage: 100/5 MICROGRAM, UNKNOWN
     Route: 055
  2. DULERA [Suspect]
     Active Substance: FORMOTEROL FUMARATE DIHYDRATE\MOMETASONE FUROATE
     Dosage: 100/5MICROGRAMS, 2 PUFFS, TWICE DAILY
     Route: 055
     Dates: start: 20161121, end: 20170206

REACTIONS (3)
  - Drug dose omission [Unknown]
  - Dyspnoea [Unknown]
  - Product container issue [Unknown]

NARRATIVE: CASE EVENT DATE: 2016
